FAERS Safety Report 12554247 (Version 14)
Quarter: 2018Q4

REPORT INFORMATION
  Report Type: Report from Study
  Country: US (occurrence: US)
  Receive Date: 20160713
  Receipt Date: 20181029
  Transmission Date: 20190204
  Serious: Yes (Hospitalization)
  Sender: FDA-Public Use
  Company Number: US-ACTELION-A-US2016-139013

PATIENT
  Age: 37 Year
  Sex: Female
  Weight: 73.92 kg

DRUGS (11)
  1. UPTRAVI [Suspect]
     Active Substance: SELEXIPAG
     Indication: PULMONARY HYPERTENSION
     Dosage: 1000 MCG, BID
     Route: 048
     Dates: start: 20160314
  2. UPTRAVI [Suspect]
     Active Substance: SELEXIPAG
     Dosage: UNK MCG, BID
     Route: 048
  3. OPSUMIT [Suspect]
     Active Substance: MACITENTAN
     Indication: PULMONARY HYPERTENSION
     Dosage: 10 MG, UNK
     Route: 048
     Dates: start: 20140623
  4. SPIRONOLACTONE. [Concomitant]
     Active Substance: SPIRONOLACTONE
     Dosage: UNK
     Dates: start: 2017
  5. PREDNISONE. [Concomitant]
     Active Substance: PREDNISONE
     Dosage: UNK
     Dates: start: 20171205
  6. FLUTICASONE. [Concomitant]
     Active Substance: FLUTICASONE
     Dosage: UNK
     Route: 045
     Dates: start: 20180109
  7. POTASSIUM CHLORIDE. [Concomitant]
     Active Substance: POTASSIUM CHLORIDE
     Dosage: UNK
     Dates: start: 2011
  8. UPTRAVI [Suspect]
     Active Substance: SELEXIPAG
     Dosage: UNK
     Route: 048
     Dates: start: 20160316
  9. AZATHIOPRINE. [Concomitant]
     Active Substance: AZATHIOPRINE
     Dosage: UNK
     Dates: start: 20180220
  10. TRAMADOL. [Concomitant]
     Active Substance: TRAMADOL
     Dosage: UNK
     Dates: start: 2016
  11. FUROSEMIDE. [Concomitant]
     Active Substance: FUROSEMIDE
     Dosage: UNK
     Dates: start: 2017

REACTIONS (26)
  - Haemoglobin decreased [Unknown]
  - Mean cell volume increased [Unknown]
  - Pleural effusion [Unknown]
  - Atrial flutter [Recovering/Resolving]
  - Pain [Unknown]
  - Mean cell haemoglobin increased [Unknown]
  - Constipation [Unknown]
  - Haematocrit decreased [Unknown]
  - Muscular weakness [Unknown]
  - Back pain [Not Recovered/Not Resolved]
  - Leukopenia [Unknown]
  - White blood cell count decreased [Unknown]
  - Red blood cell count decreased [Unknown]
  - Product dose omission [Unknown]
  - Pruritus [Unknown]
  - Pericardial effusion [Recovered/Resolved]
  - Cardiac disorder [Unknown]
  - Malaise [Unknown]
  - Polymyositis [Unknown]
  - Pericarditis [Unknown]
  - Treatment noncompliance [Unknown]
  - Cardiac failure congestive [Recovered/Resolved]
  - Hospitalisation [Unknown]
  - Neutropenia [Unknown]
  - Mean cell haemoglobin concentration decreased [Unknown]
  - Supraventricular tachycardia [Recovering/Resolving]

NARRATIVE: CASE EVENT DATE: 20160627
